FAERS Safety Report 8201008-0 (Version None)
Quarter: 2012Q1

REPORT INFORMATION
  Report Type: 
  Country: None (occurrence: None)
  Receive Date: 20120312
  Receipt Date: 20120306
  Transmission Date: 20120608
  Serious: Yes (Death)
  Sender: FDA-Public Use
  Company Number: JP-PFIZER INC-2012044109

PATIENT
  Age: 78 Year
  Sex: Male
  Weight: 51.4 kg

DRUGS (24)
  1. CLARITIN [Concomitant]
     Dosage: UNK
     Route: 048
     Dates: end: 20111210
  2. DORIPENEM MONOHYDRATE [Concomitant]
     Dosage: UNK
     Route: 042
     Dates: start: 20111209, end: 20111210
  3. IPD [Concomitant]
     Dosage: UNK
     Route: 048
     Dates: end: 20111210
  4. ALINAMIN F [Concomitant]
     Indication: HYPOVITAMINOSIS
     Dosage: UNK
     Route: 042
     Dates: start: 20111121, end: 20111210
  5. HANP [Concomitant]
     Dosage: UNK
     Route: 042
     Dates: start: 20111125, end: 20111210
  6. DORIPENEM MONOHYDRATE [Concomitant]
     Dosage: UNK
     Route: 042
     Dates: start: 20111028, end: 20111101
  7. AMBRISENTAN [Concomitant]
     Dosage: UNK
     Route: 048
     Dates: start: 20111031, end: 20111210
  8. FAROM [Concomitant]
     Indication: PROPHYLAXIS
     Dosage: UNK
     Route: 048
     Dates: start: 20111121, end: 20111128
  9. PRIMPERAN TAB [Concomitant]
     Dosage: UNK
     Route: 042
     Dates: start: 20111121, end: 20111125
  10. SELBEX [Concomitant]
     Indication: PROPHYLAXIS
     Dosage: UNK
     Route: 048
     Dates: start: 20111121, end: 20111128
  11. CEFTRIAXONE SODIUM [Concomitant]
     Dosage: UNK
     Route: 042
     Dates: start: 20111126, end: 20111208
  12. DORIPENEM MONOHYDRATE [Concomitant]
     Dosage: UNK
     Route: 042
     Dates: start: 20111121, end: 20111125
  13. SOLON [Concomitant]
     Indication: PROPHYLAXIS
     Dosage: UNK
     Route: 048
     Dates: end: 20111210
  14. NEORAL [Concomitant]
     Dosage: UNK
     Route: 048
     Dates: end: 20111210
  15. EMPYNASE P [Concomitant]
     Indication: PROPHYLAXIS
     Dosage: UNK
     Route: 048
     Dates: start: 20111121, end: 20111128
  16. SILDENAFIL CITRATE [Suspect]
     Indication: PULMONARY HYPERTENSION
     Dosage: 20 MG, 3X/DAY
     Route: 048
     Dates: start: 20111019
  17. BISOLVON [Concomitant]
     Dosage: UNK
     Route: 042
     Dates: start: 20111126, end: 20111210
  18. VOLTAREN [Concomitant]
     Indication: CHILLS
     Dosage: UNK
     Dates: end: 20111210
  19. ACETAMINOPHEN [Concomitant]
     Indication: CHILLS
     Dosage: UNK
     Dates: start: 20111208, end: 20111208
  20. METHYLPREDNISOLONE SODIUM SUCCINATE [Concomitant]
     Dosage: UNK
     Route: 042
     Dates: start: 20111128, end: 20111130
  21. FAMOTIDINE [Concomitant]
     Indication: PROPHYLAXIS
     Dosage: UNK
     Route: 048
     Dates: start: 20111022, end: 20111210
  22. LOXONIN [Concomitant]
     Indication: PROPHYLAXIS
     Dosage: UNK
     Route: 048
     Dates: start: 20111121, end: 20111128
  23. DICLOFENAC SODIUM [Concomitant]
     Indication: CHILLS
     Dosage: UNK
     Dates: start: 20111208, end: 20111208
  24. METHYLPREDNISOLONE SODIUM SUCCINATE [Concomitant]
     Dosage: UNK
     Route: 042
     Dates: start: 20111209, end: 20111210

REACTIONS (1)
  - COR PULMONALE [None]
